FAERS Safety Report 6921762-5 (Version None)
Quarter: 2010Q3

REPORT INFORMATION
  Report Type: 
  Country: None (occurrence: None)
  Receive Date: 20100812
  Receipt Date: 20100802
  Transmission Date: 20110219
  Serious: Yes (Hospitalization)
  Sender: FDA-Public Use
  Company Number: DE-ABBOTT-10P-062-0661950-00

PATIENT
  Sex: Male
  Weight: 82 kg

DRUGS (7)
  1. CLARITHROMYCIN [Suspect]
     Indication: SUICIDE ATTEMPT
     Dosage: UNK.
     Route: 048
     Dates: start: 20100802, end: 20100802
  2. PANTOZOL [Suspect]
     Indication: SUICIDE ATTEMPT
     Dosage: UNK.
     Route: 048
     Dates: start: 20100802, end: 20100802
  3. DICLOFENAC [Suspect]
     Indication: SUICIDE ATTEMPT
     Route: 048
     Dates: start: 20100802, end: 20100802
  4. AMOXICILLIN [Suspect]
     Indication: SUICIDE ATTEMPT
     Dosage: UNK.
     Route: 048
     Dates: start: 20100802, end: 20100802
  5. TRAMAL LONG 50 RETARD [Suspect]
     Indication: SUICIDE ATTEMPT
     Dosage: UNK.
     Route: 048
     Dates: start: 20100802, end: 20100802
  6. VALORON N RETARD 50/4 [Suspect]
     Indication: SUICIDE ATTEMPT
     Dosage: UNK.
     Route: 048
     Dates: start: 20100802, end: 20100802
  7. ALCOHOLIC FOOD [Suspect]
     Indication: SUICIDE ATTEMPT
     Dosage: UNK.
     Route: 048
     Dates: start: 20100802, end: 20100802

REACTIONS (1)
  - SUICIDE ATTEMPT [None]
